FAERS Safety Report 13198077 (Version 1)
Quarter: 2017Q1

REPORT INFORMATION
  Report Type: Spontaneous
  Country: US (occurrence: US)
  Receive Date: 20170207
  Receipt Date: 20170207
  Transmission Date: 20170428
  Serious: No
  Sender: FDA-Public Use
  Company Number: None

PATIENT
  Age: 44 Year
  Sex: Female

DRUGS (1)
  1. HUMIRA [Suspect]
     Active Substance: ADALIMUMAB
     Indication: PSORIASIS
     Route: 058
     Dates: start: 20161223

REACTIONS (6)
  - Abdominal pain upper [None]
  - Dizziness [None]
  - Dehydration [None]
  - Blood potassium decreased [None]
  - Paraesthesia [None]
  - Rash [None]

NARRATIVE: CASE EVENT DATE: 20161225
